FAERS Safety Report 6921533-X (Version None)
Quarter: 2010Q3

REPORT INFORMATION
  Report Type: 
  Country: None (occurrence: None)
  Receive Date: 20100812
  Receipt Date: 20100712
  Transmission Date: 20110219
  Serious: No
  Sender: FDA-Public Use
  Company Number: US-BAYER-201018233BCC

PATIENT
  Sex: Female
  Weight: 54 kg

DRUGS (1)
  1. ALEVE (CAPLET) [Suspect]
     Indication: TOOTHACHE
     Dosage: UNIT DOSE: 220 MG
     Route: 048

REACTIONS (1)
  - TOOTHACHE [None]
